FAERS Safety Report 4884708-X (Version None)
Quarter: 2005Q4

REPORT INFORMATION
  Report Type: 
  Country: None (occurrence: None)
  Receive Date: 20051201
  Receipt Date: 20050831
  Transmission Date: 20060501
  Serious: No
  Sender: FDA-Public Use
  Company Number: 2005PV001733

PATIENT
  Age: 38 Year
  Sex: Female
  Weight: 112.9457 kg

DRUGS (7)
  1. BYETTA [Suspect]
     Indication: DIABETES MELLITUS NON-INSULIN-DEPENDENT
     Dosage: 5 MCG; BID; SC
     Route: 058
     Dates: start: 20050817, end: 20050829
  2. GLUCOVANCE [Concomitant]
  3. LANTUS [Concomitant]
  4. THEOPHYLLINE [Concomitant]
  5. SINGULAIR [Concomitant]
  6. BENADRYL ^PFIZER WARNER-LAMBERT^ [Concomitant]
  7. RANITIDINE [Concomitant]

REACTIONS (7)
  - BACK PAIN [None]
  - CHILLS [None]
  - DIARRHOEA [None]
  - FEELING COLD [None]
  - NAUSEA [None]
  - VOMITING [None]
  - WEIGHT DECREASED [None]
